FAERS Safety Report 14191375 (Version 4)
Quarter: 2017Q4

REPORT INFORMATION
  Report Type: Report from Study
  Country: FR (occurrence: FR)
  Receive Date: 20171115
  Receipt Date: 20171222
  Transmission Date: 20180321
  Serious: Yes (Hospitalization, Other)
  Sender: FDA-Public Use
  Company Number: FR-PFIZER INC-2015248049

PATIENT
  Age: 44 Year
  Sex: Female
  Weight: 67 kg

DRUGS (7)
  1. PANTOPRAZOLE [Concomitant]
     Active Substance: PANTOPRAZOLE
     Indication: GASTROOESOPHAGEAL REFLUX DISEASE
     Dosage: UNK
     Route: 048
     Dates: start: 20150312
  2. SIROLIMUS. [Suspect]
     Active Substance: SIROLIMUS
     Dosage: 3 MG, CYCLIC
     Route: 048
     Dates: start: 20150330, end: 20150718
  3. ENDOXAN [Suspect]
     Active Substance: CYCLOPHOSPHAMIDE
     Dosage: 100 MG, CYCLIC (4 CYCLES)
     Route: 048
     Dates: start: 20150330, end: 20150712
  4. BIPROFENID [Concomitant]
     Active Substance: KETOPROFEN
     Indication: TUMOUR PAIN
     Dosage: UNK
     Route: 048
     Dates: start: 20150427
  5. ZOLEDRONIC ACID [Suspect]
     Active Substance: ZOLEDRONIC ACID
     Dosage: 0.04 MG/ML, CYCLIC (4 CYCLES)
     Route: 030
     Dates: start: 20150331, end: 20150625
  6. METHOTREXATE. [Suspect]
     Active Substance: METHOTREXATE
     Dosage: 5 MG, CYCLIC (4 CYCLES)
     Route: 048
     Dates: start: 20150330, end: 20150715
  7. PARACETAMOL [Concomitant]
     Active Substance: ACETAMINOPHEN
     Indication: TUMOUR PAIN
     Dosage: UNK
     Route: 048
     Dates: start: 20150401

REACTIONS (2)
  - Pneumonitis [Recovered/Resolved with Sequelae]
  - Lymphopenia [Recovered/Resolved]

NARRATIVE: CASE EVENT DATE: 20150718
